FAERS Safety Report 22607061 (Version 2)
Quarter: 2023Q4

REPORT INFORMATION
  Report Type: Spontaneous
  Country: US (occurrence: US)
  Receive Date: 20230615
  Receipt Date: 20231215
  Transmission Date: 20240109
  Serious: Yes (Other)
  Sender: FDA-Public Use
  Company Number: US-SANOFI-01651842

PATIENT
  Age: 38 Year
  Sex: Female

DRUGS (2)
  1. LEMTRADA [Suspect]
     Active Substance: ALEMTUZUMAB
     Indication: Multiple sclerosis
     Dosage: 12 MG, QD
     Route: 041
     Dates: start: 20201214, end: 20201218
  2. LEMTRADA [Suspect]
     Active Substance: ALEMTUZUMAB
     Dosage: 12 MG, QD
     Route: 041
     Dates: end: 20211215

REACTIONS (2)
  - Autoimmune disorder [Unknown]
  - Blood thyroid stimulating hormone abnormal [Unknown]

NARRATIVE: CASE EVENT DATE: 20230608
